FAERS Safety Report 21441047 (Version 3)
Quarter: 2022Q4

REPORT INFORMATION
  Report Type: Spontaneous
  Country: JP (occurrence: JP)
  Receive Date: 20221011
  Receipt Date: 20221222
  Transmission Date: 20230113
  Serious: Yes (Other)
  Sender: FDA-Public Use
  Company Number: JP-NOVARTISPH-NVSC2022JP227050

PATIENT

DRUGS (2)
  1. EVEROLIMUS [Suspect]
     Active Substance: EVEROLIMUS
     Indication: Tuberous sclerosis complex associated neuropsychiatric disease
     Dosage: 10 MG
     Route: 065
  2. EVEROLIMUS [Suspect]
     Active Substance: EVEROLIMUS
     Dosage: RESTARTED WITH VERY LOW DOSE
     Route: 065

REACTIONS (3)
  - Tuberous sclerosis complex associated neuropsychiatric disease [Unknown]
  - Condition aggravated [Unknown]
  - Confusional state [Unknown]
